FAERS Safety Report 14174638 (Version 1)
Quarter: 2017Q4

REPORT INFORMATION
  Report Type: Spontaneous
  Country: GB (occurrence: GB)
  Receive Date: 20171109
  Receipt Date: 20171109
  Transmission Date: 20180321
  Serious: Yes (Other)
  Sender: FDA-Public Use
  Company Number: GB-JNJFOC-20171101120

PATIENT
  Age: 47 Year
  Sex: Female
  Weight: 89.7 kg

DRUGS (2)
  1. RISPERIDONE. [Suspect]
     Active Substance: RISPERIDONE
     Indication: PRODUCT USED FOR UNKNOWN INDICATION
     Route: 051
     Dates: start: 20160427, end: 20170305
  2. RISPERIDONE. [Suspect]
     Active Substance: RISPERIDONE
     Indication: PRODUCT USED FOR UNKNOWN INDICATION
     Dosage: DOSE INCREASED
     Route: 051
     Dates: start: 2017

REACTIONS (22)
  - Dysuria [Not Recovered/Not Resolved]
  - Back pain [Unknown]
  - Abnormal weight gain [Unknown]
  - Dyspnoea [Unknown]
  - Initial insomnia [Unknown]
  - Pruritus [Unknown]
  - Restlessness [Unknown]
  - Increased appetite [Unknown]
  - Temperature regulation disorder [Unknown]
  - Irritable bowel syndrome [Unknown]
  - Ear disorder [Unknown]
  - Dry mouth [Unknown]
  - Cough [Unknown]
  - Eczema [Unknown]
  - Thirst [Unknown]
  - Pollakiuria [Unknown]
  - Medication error [Unknown]
  - Urethral pain [Unknown]
  - Visual impairment [Unknown]
  - Hyperhidrosis [Unknown]
  - Heart rate increased [Not Recovered/Not Resolved]
  - Respiratory disorder [Unknown]

NARRATIVE: CASE EVENT DATE: 20160427
